FAERS Safety Report 14639596 (Version 2)
Quarter: 2018Q4

REPORT INFORMATION
  Report Type: Spontaneous
  Country: FR (occurrence: FR)
  Receive Date: 20180315
  Receipt Date: 20181023
  Transmission Date: 20190204
  Serious: Yes (Other)
  Sender: FDA-Public Use
  Company Number: FR-MERCK KGAA-2043790

PATIENT
  Age: 56 Year
  Sex: Female
  Weight: 60 kg

DRUGS (1)
  1. EUTHYROX [Suspect]
     Active Substance: LEVOTHYROXINE SODIUM
     Indication: HYPOTHYROIDISM
     Dates: start: 201706

REACTIONS (25)
  - Tendonitis [None]
  - Mood altered [None]
  - Loss of personal independence in daily activities [None]
  - Bradycardia [Not Recovered/Not Resolved]
  - Arthralgia [None]
  - Muscle spasms [None]
  - Joint swelling [None]
  - Syncope [None]
  - Social avoidant behaviour [None]
  - Blood thyroid stimulating hormone increased [None]
  - Fear [None]
  - Dizziness [None]
  - Weight increased [None]
  - Peripheral swelling [None]
  - Depressed mood [None]
  - Aggression [None]
  - Anxiety [Recovered/Resolved]
  - Migraine [Not Recovered/Not Resolved]
  - Constipation [None]
  - Disturbance in attention [Not Recovered/Not Resolved]
  - Pain [None]
  - Fatigue [None]
  - Dysphonia [None]
  - Myalgia [Not Recovered/Not Resolved]
  - Malaise [Not Recovered/Not Resolved]

NARRATIVE: CASE EVENT DATE: 2017
